FAERS Safety Report 6378683-9 (Version None)
Quarter: 2009Q3

REPORT INFORMATION
  Report Type: 
  Country: None (occurrence: None)
  Receive Date: 20090928
  Receipt Date: 20090917
  Transmission Date: 20100115
  Serious: Yes (Hospitalization, Other)
  Sender: FDA-Public Use
  Company Number: FR-ROCHE-657618

PATIENT
  Age: 70 Year
  Sex: Male

DRUGS (2)
  1. MIRCERA [Suspect]
     Dosage: FORM: INJECTION STARTED IN THE BEGINING OF JUNE 09.
     Route: 065
     Dates: start: 20090605
  2. MIRCERA [Suspect]
     Dosage: SECOND AND THIRD INJECTION.
     Route: 065
     Dates: end: 20090901

REACTIONS (3)
  - ACUTE PULMONARY OEDEMA [None]
  - ANAEMIA [None]
  - HYPERTENSION [None]
